FAERS Safety Report 10918516 (Version 1)
Quarter: 2015Q1

REPORT INFORMATION
  Report Type: Spontaneous
  Country: US (occurrence: US)
  Receive Date: 20150316
  Receipt Date: 20150316
  Transmission Date: 20150721
  Serious: No
  Sender: FDA-Public Use
  Company Number: US-ASTELLAS-2015US000883

PATIENT
  Sex: Male

DRUGS (1)
  1. XTANDI [Suspect]
     Active Substance: ENZALUTAMIDE
     Indication: PRODUCT USED FOR UNKNOWN INDICATION
     Route: 065
     Dates: start: 20141212

REACTIONS (10)
  - Feeling cold [Unknown]
  - Anxiety [Unknown]
  - Asthenia [Unknown]
  - Prostatic specific antigen increased [Unknown]
  - Decreased appetite [Unknown]
  - Dizziness [Unknown]
  - Weight decreased [Unknown]
  - Malaise [Unknown]
  - Influenza like illness [Unknown]
  - Nausea [Unknown]
